FAERS Safety Report 17730364 (Version 4)
Quarter: 2020Q2

REPORT INFORMATION
  Report Type: Spontaneous
  Country: US (occurrence: US)
  Receive Date: 20200430
  Receipt Date: 20200615
  Transmission Date: 20200714
  Serious: No
  Sender: FDA-Public Use
  Company Number: US-PFIZER INC-2020161975

PATIENT
  Age: 67 Year
  Sex: Female
  Weight: 79.4 kg

DRUGS (5)
  1. CELEBREX [Suspect]
     Active Substance: CELECOXIB
     Indication: JOINT SWELLING
     Dosage: 200 MG, ONCE DAILY
     Route: 048
     Dates: start: 2001
  2. CELEBREX [Suspect]
     Active Substance: CELECOXIB
     Indication: SCIATICA
  3. CELEBREX [Suspect]
     Active Substance: CELECOXIB
     Indication: MUSCULOSKELETAL PAIN
     Dosage: 200 MG, DAILY/1 CAPSULE EVERY DAY
     Route: 048
  4. NITROSTAT [Concomitant]
     Active Substance: NITROGLYCERIN
     Dosage: 0.4 MG, Q (EVERY) 5 MIN AS NEEDED (PRN)
     Route: 060
  5. HYDROXYZINE HCL [Concomitant]
     Active Substance: HYDROXYZINE HYDROCHLORIDE
     Dosage: 50 MG, Q (EVERY) 6 HOURS) AS NEEDED (PRN)

REACTIONS (1)
  - Frustration tolerance decreased [Unknown]
